FAERS Safety Report 10876451 (Version 2)
Quarter: 2015Q1

REPORT INFORMATION
  Report Type: Spontaneous
  Country: CO (occurrence: CO)
  Receive Date: 20150228
  Receipt Date: 20150320
  Transmission Date: 20150721
  Serious: Yes (Hospitalization, Other)
  Sender: FDA-Public Use
  Company Number: CO-BIOGENIDEC-2015BI018318

PATIENT
  Age: 28 Year
  Sex: Female

DRUGS (4)
  1. OMEPRAZOLE. [Concomitant]
     Active Substance: OMEPRAZOLE
     Indication: PROPHYLAXIS
     Route: 048
     Dates: start: 201410, end: 201412
  2. CALCIUM [Concomitant]
     Active Substance: CALCIUM
     Indication: SUPPLEMENTATION THERAPY
     Route: 048
     Dates: start: 201410, end: 201411
  3. ASCORBIC ACID. [Concomitant]
     Active Substance: ASCORBIC ACID
     Indication: SUPPLEMENTATION THERAPY
     Route: 048
     Dates: start: 201410, end: 201412
  4. TYSABRI [Suspect]
     Active Substance: NATALIZUMAB
     Indication: MULTIPLE SCLEROSIS
     Route: 042
     Dates: start: 201410, end: 201412

REACTIONS (5)
  - Urinary tract infection [Recovered/Resolved]
  - Multiple sclerosis [Unknown]
  - Neuromyelitis optica [Not Recovered/Not Resolved]
  - Drug hypersensitivity [Recovered/Resolved]
  - Chikungunya virus infection [Recovered/Resolved]

NARRATIVE: CASE EVENT DATE: 2015
